FAERS Safety Report 4281151-1 (Version None)
Quarter: 2004Q1

REPORT INFORMATION
  Report Type: 
  Country: None (occurrence: None)
  Receive Date: 20040129
  Receipt Date: 20031016
  Transmission Date: 20041129
  Serious: Yes (Other)
  Sender: FDA-Public Use
  Company Number: PHEH2003US09551

PATIENT
  Age: 54 Year
  Sex: Female
  Weight: 103 kg

DRUGS (8)
  1. ARANESP [Concomitant]
  2. EPOGEN [Concomitant]
  3. LASIX [Concomitant]
  4. DECADRON [Concomitant]
  5. AMBIEN [Concomitant]
  6. CALCIUM WITH VITAMIN D [Concomitant]
  7. ZOMETA [Suspect]
     Indication: METASTASES TO BONE
     Dosage: UNK,UNK
  8. ZOMETA [Suspect]
     Dosage: 4 MG EVERY 4 WEEKS
     Route: 042
     Dates: start: 20030414, end: 20031007

REACTIONS (11)
  - ANAEMIA [None]
  - ASTHENIA [None]
  - FATIGUE [None]
  - GENERALISED OEDEMA [None]
  - INSOMNIA [None]
  - METASTASES TO CENTRAL NERVOUS SYSTEM [None]
  - METASTASES TO MENINGES [None]
  - NUCLEAR MAGNETIC RESONANCE IMAGING ABNORMAL [None]
  - PANCYTOPENIA [None]
  - PAPILLOEDEMA [None]
  - VISUAL DISTURBANCE [None]
